FAERS Safety Report 21684131 (Version 1)
Quarter: 2022Q4

REPORT INFORMATION
  Report Type: Report from Study
  Country: US (occurrence: US)
  Receive Date: 20221205
  Receipt Date: 20221205
  Transmission Date: 20230112
  Serious: No
  Sender: FDA-Public Use
  Company Number: US-ZOGENIX INTERNATIONAL LIMITED-ZX008-2017-00158

PATIENT
  Age: 13 Year
  Sex: Female
  Weight: 31.6 kg

DRUGS (14)
  1. FENFLURAMINE HYDROCHLORIDE [Suspect]
     Active Substance: FENFLURAMINE HYDROCHLORIDE
     Indication: Severe myoclonic epilepsy of infancy
     Dosage: BLINDED
     Route: 048
     Dates: start: 20170510
  2. FENFLURAMINE HYDROCHLORIDE [Suspect]
     Active Substance: FENFLURAMINE HYDROCHLORIDE
     Indication: Severe myoclonic epilepsy of infancy
     Dosage: BLINDED
     Route: 048
     Dates: start: 20170510
  3. FENFLURAMINE HYDROCHLORIDE [Suspect]
     Active Substance: FENFLURAMINE HYDROCHLORIDE
     Indication: Severe myoclonic epilepsy of infancy
     Dosage: BLINDED
     Route: 048
     Dates: start: 20170510
  4. PLACEBO [Suspect]
     Active Substance: UNSPECIFIED INGREDIENT
     Indication: Severe myoclonic epilepsy of infancy
     Dosage: BLINDED
     Route: 048
     Dates: start: 20170510
  5. DEPAKENE [Concomitant]
     Active Substance: VALPROIC ACID
     Indication: Severe myoclonic epilepsy of infancy
     Dosage: 200 MG MILLIGRAM(S), BID
     Route: 048
     Dates: start: 20070704
  6. DEPAKENE [Concomitant]
     Active Substance: VALPROIC ACID
     Dosage: 250 MG MILLIGRAM(S), HS
     Route: 048
     Dates: start: 20070704
  7. LAMICTAL [Concomitant]
     Active Substance: LAMOTRIGINE
     Indication: Severe myoclonic epilepsy of infancy
     Dosage: 50 MG MILLIGRAM(S), QAM
     Route: 048
     Dates: start: 20061215
  8. LAMICTAL [Concomitant]
     Active Substance: LAMOTRIGINE
     Dosage: 75 MG MILLIGRAM(S), HS
     Route: 048
     Dates: start: 20061215
  9. KEPPRA [Concomitant]
     Active Substance: LEVETIRACETAM
     Indication: Severe myoclonic epilepsy of infancy
     Dosage: 100 MG MILLIGRAM(S), BID
     Route: 048
     Dates: start: 20080527
  10. CLONAZEPAM [Concomitant]
     Active Substance: CLONAZEPAM
     Indication: Severe myoclonic epilepsy of infancy
     Dosage: 0.25 MG MILLIGRAM(S), BID (AM AND NOON)
     Route: 048
     Dates: start: 200912
  11. CLONAZEPAM [Concomitant]
     Active Substance: CLONAZEPAM
     Dosage: 0.50 MG MILLIGRAM(S), HS
     Route: 048
     Dates: start: 200912
  12. VITAMINS [Concomitant]
     Active Substance: VITAMINS
     Indication: Supplementation therapy
     Dosage: 2 TABS, QAM
     Route: 048
     Dates: start: 2016
  13. PROBIOTICS [BIFIDOBACTERIUM LONGUM;LACTOBACILLUS ACIDOPHILUS;LACTOBACI [Concomitant]
     Indication: Supplementation therapy
     Dosage: 1 CAPS, QAM
     Route: 048
     Dates: start: 2016
  14. FISH OIL [Concomitant]
     Active Substance: FISH OIL
     Indication: Supplementation therapy
     Dosage: 2 CAPS, QAM
     Route: 048
     Dates: start: 2016

REACTIONS (2)
  - Blood pressure increased [Recovered/Resolved]
  - Heart rate increased [Recovered/Resolved]

NARRATIVE: CASE EVENT DATE: 20170525
